FAERS Safety Report 11650682 (Version 1)
Quarter: 2015Q4

REPORT INFORMATION
  Report Type: Spontaneous
  Country: US (occurrence: US)
  Receive Date: 20151021
  Receipt Date: 20151021
  Transmission Date: 20160304
  Serious: No
  Sender: FDA-Public Use
  Company Number: US-NOVOPROD-459408

PATIENT
  Age: 75 Year
  Sex: Female

DRUGS (3)
  1. VAGIFEM LD [Suspect]
     Active Substance: ESTRADIOL
     Indication: DYSURIA
  2. VESICARE [Concomitant]
     Active Substance: SOLIFENACIN SUCCINATE
     Indication: PRODUCT USED FOR UNKNOWN INDICATION
     Route: 048
  3. VAGIFEM LD [Suspect]
     Active Substance: ESTRADIOL
     Indication: DYSURIA
     Dosage: 3X/WK
     Route: 067

REACTIONS (3)
  - Urine output decreased [Recovered/Resolved]
  - Dysuria [Recovered/Resolved]
  - Off label use [Unknown]
